FAERS Safety Report 7493410-X (Version None)
Quarter: 2011Q2

REPORT INFORMATION
  Report Type: 
  Country: None (occurrence: None)
  Receive Date: 20110520
  Receipt Date: 20110516
  Transmission Date: 20111010
  Serious: Yes (Congenital Anomaly, Other)
  Sender: FDA-Public Use
  Company Number: US-PFIZER INC-2011105774

PATIENT
  Sex: Female

DRUGS (1)
  1. ZOLOFT [Suspect]
     Dosage: 100 MG, UNK
     Route: 064
     Dates: start: 20040101

REACTIONS (9)
  - DRUG EXPOSURE DURING PREGNANCY [None]
  - NASAL CONGESTION [None]
  - DIARRHOEA [None]
  - CELLULITIS [None]
  - EAR INFECTION [None]
  - HYPOACUSIS [None]
  - PYREXIA [None]
  - CLEFT PALATE REPAIR [None]
  - VOMITING [None]
